FAERS Safety Report 19947404 (Version 2)
Quarter: 2021Q4

REPORT INFORMATION
  Report Type: Spontaneous
  Country: JP (occurrence: JP)
  Receive Date: 20211012
  Receipt Date: 20211021
  Transmission Date: 20220303
  Serious: Yes (Death, Other)
  Sender: FDA-Public Use
  Company Number: JP-OTSUKA-2021_034054

PATIENT
  Age: 73 Year
  Sex: Female

DRUGS (1)
  1. SAMSCA [Suspect]
     Active Substance: TOLVAPTAN
     Indication: Adenocarcinoma pancreas
     Dosage: UNK
     Route: 065

REACTIONS (5)
  - Death [Fatal]
  - Neoplasm malignant [Unknown]
  - Ascites [Unknown]
  - Off label use [Unknown]
  - Drug monitoring procedure incorrectly performed [Unknown]
